FAERS Safety Report 25669749 (Version 1)
Quarter: 2025Q3

REPORT INFORMATION
  Report Type: Spontaneous
  Country: EU (occurrence: EU)
  Receive Date: 20250812
  Receipt Date: 20250812
  Transmission Date: 20251020
  Serious: Yes (Death, Hospitalization, Other)
  Sender: SANDOZ
  Company Number: EU-002147023-NVSC2022PT221424

PATIENT
  Age: 53 Year
  Sex: Female

DRUGS (9)
  1. DOCETAXEL [Suspect]
     Active Substance: DOCETAXEL
     Indication: Non-small cell lung cancer metastatic
     Route: 065
     Dates: start: 202012
  2. GEMCITABINE [Suspect]
     Active Substance: GEMCITABINE
     Indication: Non-small cell lung cancer metastatic
     Route: 065
     Dates: start: 202109
  3. GEFITINIB [Suspect]
     Active Substance: GEFITINIB
     Indication: Lung adenocarcinoma
     Route: 065
  4. NINTEDANIB [Suspect]
     Active Substance: NINTEDANIB
     Indication: Non-small cell lung cancer metastatic
     Route: 065
     Dates: start: 202012
  5. PEMETREXED [Suspect]
     Active Substance: PEMETREXED
     Route: 065
     Dates: start: 2022
  6. PEMETREXED [Suspect]
     Active Substance: PEMETREXED
     Indication: Lung adenocarcinoma stage IV
     Route: 065
     Dates: start: 201907
  7. PEMBROLIZUMAB [Suspect]
     Active Substance: PEMBROLIZUMAB
     Indication: Non-small cell lung cancer metastatic
     Route: 065
     Dates: start: 202007
  8. PLATINUM [Suspect]
     Active Substance: PLATINUM
     Indication: Lung adenocarcinoma stage IV
     Route: 065
     Dates: start: 201907
  9. OSIMERTINIB [Concomitant]
     Active Substance: OSIMERTINIB
     Indication: EGFR gene mutation
     Route: 065
     Dates: start: 201704

REACTIONS (10)
  - Pain [Fatal]
  - Hypoxia [Fatal]
  - Metastases to lung [Fatal]
  - Hepatotoxicity [Fatal]
  - Lung adenocarcinoma stage IV [Unknown]
  - Malignant neoplasm progression [Unknown]
  - Disease progression [Unknown]
  - Drug resistance [Unknown]
  - Cough [Unknown]
  - Fatigue [Unknown]

NARRATIVE: CASE EVENT DATE: 20200701
